FAERS Safety Report 5126561-5 (Version None)
Quarter: 2006Q4

REPORT INFORMATION
  Report Type: 
  Country: None (occurrence: None)
  Receive Date: 20061012
  Receipt Date: 20061012
  Transmission Date: 20070319
  Serious: Yes (Hospitalization)
  Sender: FDA-Public Use
  Company Number: None

PATIENT
  Sex: Male
  Weight: 74.3899 kg

DRUGS (16)
  1. DOCETAXEL [Suspect]
     Indication: CHEMOTHERAPY
     Dosage: 35MG/M2 IV/1HR EVERY 3 WK
     Route: 042
     Dates: start: 20060421
  2. DOCETAXEL [Suspect]
     Indication: CHEMOTHERAPY
     Dosage: 35MG/M2 IV/1HR EVERY 3 WK
     Route: 042
     Dates: start: 20060512
  3. DOCETAXEL [Suspect]
     Indication: CHEMOTHERAPY
     Dosage: 35MG/M2 IV/1HR EVERY 3 WK
     Route: 042
     Dates: start: 20060609
  4. DOCETAXEL [Suspect]
     Indication: CHEMOTHERAPY
     Dosage: 35MG/M2 IV/1HR EVERY 3 WK
     Route: 042
     Dates: start: 20060630
  5. DOCETAXEL [Suspect]
     Indication: CHEMOTHERAPY
     Dosage: 35MG/M2 IV/1HR EVERY 3 WK
     Route: 042
     Dates: start: 20060724
  6. DOCETAXEL [Suspect]
     Indication: CHEMOTHERAPY
     Dosage: 35MG/M2 IV/1HR EVERY 3 WK
     Route: 042
     Dates: start: 20060814
  7. DOCETAXEL [Suspect]
     Indication: CHEMOTHERAPY
     Dosage: 35MG/M2 IV/1HR EVERY 3 WK
     Route: 042
     Dates: start: 20060905
  8. DOCETAXEL [Suspect]
     Indication: CHEMOTHERAPY
     Dosage: 35MG/M2 IV/1HR EVERY 3 WK
     Route: 042
     Dates: start: 20060925
  9. GEFITINIB [Suspect]
     Indication: CHEMOTHERAPY
     Dosage: 250 MG ORAL DOSE/DAY
     Route: 048
     Dates: start: 20060421
  10. GEFITINIB [Suspect]
     Indication: CHEMOTHERAPY
     Dosage: 250 MG ORAL DOSE/DAY
     Route: 048
     Dates: start: 20060512
  11. GEFITINIB [Suspect]
     Indication: CHEMOTHERAPY
     Dosage: 250 MG ORAL DOSE/DAY
     Route: 048
     Dates: start: 20060609
  12. GEFITINIB [Suspect]
     Indication: CHEMOTHERAPY
     Dosage: 250 MG ORAL DOSE/DAY
     Route: 048
     Dates: start: 20060630
  13. GEFITINIB [Suspect]
     Indication: CHEMOTHERAPY
     Dosage: 250 MG ORAL DOSE/DAY
     Route: 048
     Dates: start: 20060724
  14. GEFITINIB [Suspect]
     Indication: CHEMOTHERAPY
     Dosage: 250 MG ORAL DOSE/DAY
     Route: 048
     Dates: start: 20060814
  15. GEFITINIB [Suspect]
     Indication: CHEMOTHERAPY
     Dosage: 250 MG ORAL DOSE/DAY
     Route: 048
     Dates: start: 20060905
  16. GEFITINIB [Suspect]
     Indication: CHEMOTHERAPY
     Dosage: 250 MG ORAL DOSE/DAY
     Route: 048
     Dates: start: 20060925

REACTIONS (2)
  - DEHYDRATION [None]
  - DIARRHOEA [None]
